FAERS Safety Report 14377677 (Version 2)
Quarter: 2018Q1

REPORT INFORMATION
  Report Type: Spontaneous
  Country: JP (occurrence: JP)
  Receive Date: 20180111
  Receipt Date: 20180222
  Transmission Date: 20180509
  Serious: Yes (Death, Hospitalization)
  Sender: FDA-Public Use
  Company Number: JP-SA-2017SA237675

PATIENT
  Age: 70 Year
  Sex: Male
  Weight: 62.3 kg

DRUGS (21)
  1. MIYA-BM [Concomitant]
     Active Substance: CLOSTRIDIUM BUTYRICUM SPORES STRAIN M-55
     Route: 065
  2. MECOBALAMIN [Concomitant]
     Active Substance: METHYLCOBALAMIN
     Route: 048
  3. LOXOPROFEN [Concomitant]
     Active Substance: LOXOPROFEN
     Route: 048
  4. RINDERON V [Concomitant]
     Active Substance: BETAMETHASONE VALERATE
     Route: 048
     Dates: start: 20171030
  5. METGLUCO [Concomitant]
     Active Substance: METFORMIN HYDROCHLORIDE
     Route: 048
  6. CRESTOR [Concomitant]
     Active Substance: ROSUVASTATIN CALCIUM
     Route: 048
  7. ZYTIGA [Concomitant]
     Active Substance: ABIRATERONE ACETATE
     Route: 048
     Dates: start: 20170316, end: 20171013
  8. XTANDI [Concomitant]
     Active Substance: ENZALUTAMIDE
     Route: 065
     Dates: start: 20151112, end: 20160613
  9. DOCETAXEL. [Concomitant]
     Active Substance: DOCETAXEL
     Route: 051
     Dates: start: 20170316, end: 20170316
  10. RINDERON V [Concomitant]
     Active Substance: BETAMETHASONE VALERATE
     Route: 048
     Dates: start: 20171116
  11. MAGNESIUM OXIDE. [Concomitant]
     Active Substance: MAGNESIUM OXIDE
     Route: 065
  12. BFLUID [Concomitant]
     Active Substance: AMINO ACIDS\DEXTROSE\ELECTROLYTES NOS\VITAMINS
     Route: 042
     Dates: start: 20171119
  13. LANSOPRAZOLE OD [Concomitant]
     Active Substance: LANSOPRAZOLE
     Route: 048
  14. OXYCONTIN [Concomitant]
     Active Substance: OXYCODONE HYDROCHLORIDE
     Route: 048
     Dates: start: 20171012
  15. ARGAMATE [Concomitant]
     Active Substance: CALCIUM POLYSTYRENE SULFONATE
     Indication: HYPOKALAEMIA
     Dosage: JELLY
     Route: 048
     Dates: start: 20171117
  16. XOFIGO [Concomitant]
     Active Substance: RADIUM RA-223 DICHLORIDE
     Route: 065
     Dates: start: 20171013, end: 20171013
  17. JEVTANA [Suspect]
     Active Substance: CABAZITAXEL
     Indication: HORMONE-REFRACTORY PROSTATE CANCER
     Route: 042
     Dates: start: 20171115, end: 20171115
  18. JANUVIA [Concomitant]
     Active Substance: SITAGLIPTIN PHOSPHATE
     Route: 048
  19. PENTASA [Concomitant]
     Active Substance: MESALAMINE
     Route: 048
  20. OXINORM (JAPAN) [Concomitant]
     Active Substance: OXYCODONE HYDROCHLORIDE
     Dosage: 5 MG WHEN HAVING PAIN
     Route: 048
  21. DOCETAXEL. [Concomitant]
     Active Substance: DOCETAXEL
     Route: 051
     Dates: start: 20160613, end: 20160613

REACTIONS (7)
  - Hyperkalaemia [Unknown]
  - Febrile neutropenia [Fatal]
  - Blood pressure decreased [Unknown]
  - Respiratory arrest [Unknown]
  - Pyrexia [Unknown]
  - Altered state of consciousness [Unknown]
  - Shock [Unknown]

NARRATIVE: CASE EVENT DATE: 20171120
